FAERS Safety Report 6101612-X (Version None)
Quarter: 2009Q1

REPORT INFORMATION
  Report Type: 
  Country: None (occurrence: None)
  Receive Date: 20090304
  Receipt Date: 20090126
  Transmission Date: 20090719
  Serious: No
  Sender: FDA-Public Use
  Company Number: US-BAYER-200912083NA

PATIENT
  Age: 23 Year
  Sex: Female

DRUGS (1)
  1. MIRENA [Suspect]
     Indication: CONTRACEPTION
     Route: 015
     Dates: start: 20080802

REACTIONS (4)
  - CONTACT LENS INTOLERANCE [None]
  - DRY EYE [None]
  - LACRIMATION INCREASED [None]
  - OCULAR HYPERAEMIA [None]
